APPROVED DRUG PRODUCT: OMNIPAQUE 70
Active Ingredient: IOHEXOL
Strength: 15.1%
Dosage Form/Route: SOLUTION;URETHRAL
Application: N018956 | Product #007
Applicant: GE HEALTHCARE
Approved: Jun 1, 1994 | RLD: No | RS: No | Type: DISCN